FAERS Safety Report 8579128-0 (Version None)
Quarter: 2012Q2

REPORT INFORMATION
  Report Type: 
  Country: None (occurrence: None)
  Receive Date: 20120423
  Receipt Date: 20100519
  Transmission Date: 20120825
  Serious: Yes (Death)
  Sender: FDA-Public Use
  Company Number: PHHY2010US31980

PATIENT
  Age: 91 Year
  Sex: Male

DRUGS (3)
  1. VITAMIN B6 [Concomitant]
  2. EXJADE [Suspect]
     Indication: MYELODYSPLASTIC SYNDROME
     Dosage: 1000 MG, QD, ORAL
     Route: 048
  3. FOLIC ACID [Concomitant]

REACTIONS (4)
  - DYSPNOEA [None]
  - DISEASE PROGRESSION [None]
  - NEOPLASM MALIGNANT [None]
  - FATIGUE [None]
